FAERS Safety Report 4478737-8 (Version None)
Quarter: 2004Q4

REPORT INFORMATION
  Report Type: 
  Country: None (occurrence: None)
  Receive Date: 20040923
  Receipt Date: 20040611
  Transmission Date: 20050328
  Serious: Yes (Other)
  Sender: FDA-Public Use
  Company Number: USA040465888

PATIENT
  Age: 69 Year
  Sex: Female

DRUGS (5)
  1. EVISTA [Suspect]
     Dates: start: 20030301
  2. FORTEO [Suspect]
     Indication: OSTEOPOROSIS
     Dates: start: 20040325
  3. ACTONEL [Concomitant]
  4. CELEBREX [Concomitant]
  5. MULTI-VITAMINS [Concomitant]

REACTIONS (6)
  - DYSGEUSIA [None]
  - HERPES SIMPLEX [None]
  - HYPOTRICHOSIS [None]
  - MUSCLE CRAMP [None]
  - OVERDOSE [None]
  - SPINAL FRACTURE [None]
